FAERS Safety Report 21143126 (Version 1)
Quarter: 2022Q3

REPORT INFORMATION
  Report Type: Spontaneous
  Country: CA (occurrence: CA)
  Receive Date: 20220728
  Receipt Date: 20220728
  Transmission Date: 20221027
  Serious: Yes (Other)
  Sender: FDA-Public Use
  Company Number: None

PATIENT
  Age: 46 Year
  Sex: Male

DRUGS (1)
  1. ERELZI [Suspect]
     Active Substance: ETANERCEPT-SZZS
     Indication: Psoriatic arthropathy
     Dosage: UNK (NOT SPECIFIED)
     Route: 065

REACTIONS (3)
  - Ophthalmoplegia [Recovered/Resolved]
  - Demyelination [Recovered/Resolved]
  - Psoriatic arthropathy [Recovered/Resolved]
